FAERS Safety Report 15154239 (Version 1)
Quarter: 2018Q3

REPORT INFORMATION
  Report Type: Spontaneous
  Country: ES (occurrence: ES)
  Receive Date: 20180717
  Receipt Date: 20180717
  Transmission Date: 20181010
  Serious: Yes (Other)
  Sender: FDA-Public Use
  Company Number: GXKR2009ES14320

PATIENT
  Age: 75 Year
  Sex: Male

DRUGS (8)
  1. INDAPAMIDA [Concomitant]
     Active Substance: INDAPAMIDE
     Indication: HYPERTENSION
     Route: 042
  2. VALSARTAN. [Concomitant]
     Active Substance: VALSARTAN
     Indication: HYPERTENSION
     Route: 042
  3. PANTOPRAZOLE [Concomitant]
     Active Substance: PANTOPRAZOLE
     Indication: PANCREATITIS ACUTE
     Route: 042
  4. CAPTOPRIL. [Suspect]
     Active Substance: CAPTOPRIL
     Indication: HYPERTENSION
     Route: 048
  5. CM PARACETAMOL [Concomitant]
     Indication: PANCREATITIS ACUTE
     Route: 042
  6. FRAXIPARINA [Concomitant]
     Active Substance: NADROPARIN CALCIUM
     Indication: PANCREATITIS ACUTE
     Route: 058
  7. METILPREDNISOLONA [Concomitant]
     Active Substance: METHYLPREDNISOLONE
     Indication: PANCREATITIS ACUTE
     Route: 042
  8. IMIPENEM [Suspect]
     Active Substance: IMIPENEM
     Indication: PANCREATITIS ACUTE
     Route: 042

REACTIONS (1)
  - Linear IgA disease [Recovering/Resolving]
